FAERS Safety Report 13468775 (Version 7)
Quarter: 2017Q3

REPORT INFORMATION
  Report Type: Report from Study
  Country: GB (occurrence: GB)
  Receive Date: 20170421
  Receipt Date: 20170808
  Transmission Date: 20171127
  Serious: Yes (Other)
  Sender: FDA-Public Use
  Company Number: GB-JNJFOC-20170422421

PATIENT
  Age: 47 Year
  Sex: Female
  Weight: 77.8 kg

DRUGS (8)
  1. STELARA [Suspect]
     Active Substance: USTEKINUMAB
     Indication: PSORIASIS
     Route: 058
     Dates: start: 20170130
  2. DERMOL [Concomitant]
     Active Substance: BENZALKONIUM CHLORIDE\CHLORHEXIDINE HYDROCHLORIDE\ISOPROPYL MYRISTATE\PARAFFIN
     Route: 065
  3. CETRIZINE [Concomitant]
     Active Substance: CETIRIZINE HYDROCHLORIDE
     Route: 065
  4. ZOPICLONE [Concomitant]
     Active Substance: ZOPICLONE
     Route: 065
  5. STELARA [Suspect]
     Active Substance: USTEKINUMAB
     Indication: PSORIATIC ARTHROPATHY
     Route: 058
     Dates: start: 20170130
  6. NEUTROGENA TGEL THERAPEUTIC [Concomitant]
     Active Substance: COAL TAR
     Route: 065
  7. REMSIMA [Concomitant]
     Active Substance: INFLIXIMAB
     Route: 065
  8. CELECOXIB. [Concomitant]
     Active Substance: CELECOXIB
     Dosage: PER ORAL AS NECESSARY.
     Route: 048
     Dates: start: 2003

REACTIONS (9)
  - Lower respiratory tract infection [Recovered/Resolved]
  - Eye pain [Unknown]
  - Dermatitis [Unknown]
  - Drug ineffective [Recovered/Resolved]
  - Psoriatic arthropathy [Not Recovered/Not Resolved]
  - Genital herpes simplex [Recovered/Resolved]
  - Oropharyngeal pain [Unknown]
  - Oral herpes [Recovering/Resolving]
  - Infection [Unknown]

NARRATIVE: CASE EVENT DATE: 20170303
